FAERS Safety Report 17633290 (Version 2)
Quarter: 2021Q2

REPORT INFORMATION
  Report Type: Spontaneous
  Country: US (occurrence: US)
  Receive Date: 20200406
  Receipt Date: 20210621
  Transmission Date: 20210716
  Serious: Yes (Hospitalization)
  Sender: FDA-Public Use
  Company Number: US-TEVA-2020-US-1217569

PATIENT
  Age: 66 Year
  Sex: Female
  Weight: 92.25 kg

DRUGS (16)
  1. VALSARTAN W/HYDROCHLOROTHIAZIDE TEVA [Suspect]
     Active Substance: HYDROCHLOROTHIAZIDE\VALSARTAN
     Dosage: VALSARTAN 320 MG/ HYDROCHLOROTHIAZIDE 25 MG
     Route: 048
     Dates: start: 20170725, end: 20171023
  2. VALSARTAN W/HYDROCHLOROTHIAZIDE TEVA [Suspect]
     Active Substance: HYDROCHLOROTHIAZIDE\VALSARTAN
     Dosage: VALSARTAN 320 MG/ HYDROCHLOROTHIAZIDE 25 MG
     Route: 048
     Dates: start: 20180605, end: 20180903
  3. VALSARTAN W/HYDROCHLOROTHIAZIDE TEVA [Suspect]
     Active Substance: HYDROCHLOROTHIAZIDE\VALSARTAN
     Dosage: VALSARTAN 320 MG/ HYDROCHLOROTHIAZIDE 25 MG
     Route: 048
     Dates: start: 20180807, end: 20181105
  4. OMAPRAZOLE [Concomitant]
     Active Substance: OMEPRAZOLE
     Route: 048
     Dates: start: 20161027, end: 20180808
  5. IBUPROFEN. [Concomitant]
     Active Substance: IBUPROFEN
     Indication: BACK PAIN
     Dosage: ONCE OR TWICE DAILY
     Route: 048
     Dates: start: 20160721, end: 20170726
  6. VALSARTAN W/HYDROCHLOROTHIAZIDE TEVA [Suspect]
     Active Substance: HYDROCHLOROTHIAZIDE\VALSARTAN
     Dosage: VALSARTAN 320 MG/ HYDROCHLOROTHIAZIDE 25 MG
     Route: 048
     Dates: start: 20160720, end: 20171023
  7. VALSARTAN W/HYDROCHLOROTHIAZIDE ACETRIS [Suspect]
     Active Substance: HYDROCHLOROTHIAZIDE\VALSARTAN
     Indication: HYPERTENSION
     Dosage: VALSARTAN 160 MG/ HYDROCHLOROTHIAZIDE 12.5 MG
     Route: 048
     Dates: start: 20140326, end: 20141005
  8. VALSARTAN W/HYDROCHLOROTHIAZIDE ACETRIS [Suspect]
     Active Substance: HYDROCHLOROTHIAZIDE\VALSARTAN
     Dosage: VALSARTAN 320 MG/ HYDROCHLOROTHIAZIDE 25 MG
     Route: 048
     Dates: start: 20140908, end: 20160725
  9. VALSARTAN W/HYDROCHLOROTHIAZIDE ACETRIS [Suspect]
     Active Substance: HYDROCHLOROTHIAZIDE\VALSARTAN
     Dosage: 1 DOSAGE FORMS DAILY; VALSARTAN 320 MG/ HYDROCHLOROTHIAZIDE 25 MG
     Route: 048
     Dates: start: 20181127, end: 20190527
  10. IBUPROFEN. [Concomitant]
     Active Substance: IBUPROFEN
     Indication: ARTHRALGIA
     Dosage: ONCE OR TWICE DAILY
     Route: 048
     Dates: start: 20100104, end: 20171215
  11. VALSARTAN W/HYDROCHLOROTHIAZIDE TEVA [Suspect]
     Active Substance: HYDROCHLOROTHIAZIDE\VALSARTAN
     Indication: HYPERTENSION
     Dosage: VALSARTAN 320 MG/ HYDROCHLOROTHIAZIDE 25 MG
     Route: 048
     Dates: start: 20121030, end: 20140310
  12. IBUPROFEN. [Concomitant]
     Active Substance: IBUPROFEN
     Dosage: AS NEEDED
     Route: 048
  13. ALPRAZOLAM. [Concomitant]
     Active Substance: ALPRAZOLAM
     Indication: SLEEP DISORDER
     Dosage: AT BEDTIME AS NEEDED
     Route: 048
     Dates: start: 20161104, end: 20180317
  14. VALSARTAN W/HYDROCHLOROTHIAZIDE TEVA [Suspect]
     Active Substance: HYDROCHLOROTHIAZIDE\VALSARTAN
     Dosage: VALSARTAN 320 MG/ HYDROCHLOROTHIAZIDE 25 MG
     Route: 048
     Dates: start: 20180316, end: 20180902
  15. ALPRAZOLAM. [Concomitant]
     Active Substance: ALPRAZOLAM
     Indication: ANXIETY
     Dosage: AT BEDTIME AS NEEDED
     Route: 048
     Dates: start: 20050222, end: 20171219
  16. OMAPRAZOLE [Concomitant]
     Active Substance: OMEPRAZOLE
     Indication: GASTROOESOPHAGEAL REFLUX DISEASE
     Route: 048
     Dates: start: 20100104, end: 20180312

REACTIONS (3)
  - Colon cancer stage III [Recovering/Resolving]
  - Diarrhoea [Not Recovered/Not Resolved]
  - Abdominal pain upper [Not Recovered/Not Resolved]

NARRATIVE: CASE EVENT DATE: 201711
